FAERS Safety Report 11026323 (Version 2)
Quarter: 2015Q2

REPORT INFORMATION
  Report Type: Other
  Country: US (occurrence: US)
  Receive Date: 20150414
  Receipt Date: 20150525
  Transmission Date: 20150821
  Serious: Yes (Death, Hospitalization, Other)
  Sender: FDA-Public Use
  Company Number: US-SHIRE-US201503045

PATIENT
  Age: 74 Year
  Sex: Female
  Weight: 46.26 kg

DRUGS (2)
  1. FOSRENOL [Suspect]
     Active Substance: LANTHANUM CARBONATE
     Dosage: 1500 MG, OTHER, WITH EVERY MEAL
     Route: 048
     Dates: start: 2014, end: 201503
  2. FOSRENOL [Suspect]
     Active Substance: LANTHANUM CARBONATE
     Indication: HYPERPHOSPHATAEMIA
     Dosage: 500 MG, OTHER, WITH EVERY MEAL
     Route: 048
     Dates: start: 2013, end: 2014

REACTIONS (5)
  - Respiratory distress [Fatal]
  - Sepsis [Fatal]
  - Respiratory disorder [Fatal]
  - Gastrointestinal infection [Fatal]
  - Large intestine perforation [Fatal]

NARRATIVE: CASE EVENT DATE: 201503
